FAERS Safety Report 21338569 (Version 1)
Quarter: 2022Q3

REPORT INFORMATION
  Report Type: Other
  Country: CA (occurrence: None)
  Receive Date: 20220915
  Receipt Date: 20220915
  Transmission Date: 20221027
  Serious: Yes (Death)
  Sender: FDA-Public Use
  Company Number: CA-ROCHE-3097695

PATIENT
  Sex: Female

DRUGS (6)
  1. ACTEMRA [Suspect]
     Active Substance: TOCILIZUMAB
     Indication: Rheumatoid arthritis
     Dosage: BATCH/LOT NO: B2116B08. EXPIRY DATE:30/SEP/2023
     Route: 042
     Dates: start: 20190816, end: 20220121
  2. ACTEMRA [Suspect]
     Active Substance: TOCILIZUMAB
     Dosage: BATCH/LOT NO: B3045B09. EXPIRY DATE:30/APR/2023
     Route: 042
     Dates: start: 20210414, end: 20220610
  3. CALCIUM [Concomitant]
     Active Substance: CALCIUM
     Indication: Product used for unknown indication
  4. PREDNISONE [Concomitant]
     Active Substance: PREDNISONE
     Indication: Product used for unknown indication
  5. VALSARTAN [Concomitant]
     Active Substance: VALSARTAN
     Indication: Product used for unknown indication
  6. POLYSPORIN CREAM [Concomitant]

REACTIONS (6)
  - Fall [Unknown]
  - Pain in extremity [Unknown]
  - Asthenia [Not Recovered/Not Resolved]
  - Bedridden [Not Recovered/Not Resolved]
  - Gastrointestinal perforation [Fatal]
  - Sepsis [Fatal]

NARRATIVE: CASE EVENT DATE: 20220101
